FAERS Safety Report 16116448 (Version 1)
Quarter: 2019Q1

REPORT INFORMATION
  Report Type: Spontaneous
  Country: FR (occurrence: FR)
  Receive Date: 20190326
  Receipt Date: 20190326
  Transmission Date: 20190418
  Serious: Yes (Hospitalization, Disabling)
  Sender: FDA-Public Use
  Company Number: FR-TEVA-2019-FR-1029048

PATIENT
  Age: 55 Year
  Sex: Female
  Weight: 51 kg

DRUGS (14)
  1. CISPLATINE [Suspect]
     Active Substance: CISPLATIN
     Indication: BRONCHIAL CARCINOMA
     Dosage: 110 MILLIGRAM DAILY;
     Route: 042
     Dates: start: 20181224, end: 20181224
  2. DOLIPRANE [Concomitant]
     Active Substance: ACETAMINOPHEN
     Indication: PAIN
     Dosage: 3 GRAM DAILY;
     Route: 048
  3. ACTISKENAN 10 MG, G?LULE [Suspect]
     Active Substance: MORPHINE SULFATE
     Indication: PAIN
     Route: 048
     Dates: end: 201901
  4. VOLTARENE (DICLOFENAC SODIUM) [Concomitant]
     Active Substance: DICLOFENAC SODIUM
     Dosage: 2 DOSAGE FORMS DAILY;
     Route: 048
     Dates: end: 201901
  5. LEVETIRACETAM. [Concomitant]
     Active Substance: LEVETIRACETAM
     Dosage: 100 MILLIGRAM DAILY;
     Route: 048
  6. LOVENOX 4000 UI ANTI-XA/0,4 ML, SOLUTION INJECTABLE EN AMPOULE [Concomitant]
     Dosage: 1 DOSAGE FORMS DAILY;
     Route: 058
  7. ALIMTA [Suspect]
     Active Substance: PEMETREXED DISODIUM
     Indication: BRONCHIAL CARCINOMA
     Dosage: 650 MILLIGRAM DAILY;
     Route: 042
     Dates: start: 20181224, end: 20181224
  8. SKENAN [Suspect]
     Active Substance: MORPHINE SULFATE
     Indication: PAIN
     Dosage: 2 DOSAGE FORMS DAILY;
     Route: 048
     Dates: end: 201901
  9. LANSOYL FRAMBOISE, GEL ORAL EN R?CIPIENT UNIDOSE [Concomitant]
     Dosage: 2 DOSAGE FORMS DAILY;
     Route: 048
  10. SPECIAFOLDINE 0,4 MG, COMPRIM? [Concomitant]
     Active Substance: FOLIC ACID
     Dosage: 1 DOSAGE FORMS DAILY;
     Route: 048
  11. DUPHALAC 10 G, POUDRE ORALE OU POUR SOLUTION RECTALE EN SACHET [Concomitant]
     Dosage: 4 DOSAGE FORMS DAILY;
     Route: 048
  12. CYANOCOBALAMINE [Concomitant]
     Active Substance: CYANOCOBALAMIN
     Dosage: 100 MICROGRAM DAILY;
     Route: 048
     Dates: end: 201901
  13. GAVISCON, SUSPENSION BUVABLE EN SACHET [Concomitant]
     Route: 048
  14. LANSOPRAZOLE. [Concomitant]
     Active Substance: LANSOPRAZOLE
     Indication: PROPHYLAXIS
     Dosage: 30 MILLIGRAM DAILY;
     Route: 048
     Dates: end: 201901

REACTIONS (2)
  - Gastrointestinal necrosis [Recovered/Resolved with Sequelae]
  - Small intestinal obstruction [Recovered/Resolved with Sequelae]

NARRATIVE: CASE EVENT DATE: 20181230
